FAERS Safety Report 9401436 (Version 1)
Quarter: 2013Q3

REPORT INFORMATION
  Report Type: Report from Study
  Country: FR (occurrence: FR)
  Receive Date: 20130716
  Receipt Date: 20130716
  Transmission Date: 20140515
  Serious: Yes (Death)
  Sender: FDA-Public Use
  Company Number: FR-ROCHE-1242192

PATIENT
  Age: 65 Year
  Sex: Male
  Weight: 50 kg

DRUGS (3)
  1. ZELBORAF [Suspect]
     Indication: MALIGNANT MELANOMA
     Dosage: 4 TABLETS DAILY
     Route: 048
  2. ZOPHREN [Concomitant]
     Route: 065
  3. CODEINE [Concomitant]
     Indication: SPINAL PAIN

REACTIONS (2)
  - Nausea [Fatal]
  - Disease progression [Fatal]
